FAERS Safety Report 5068756-5 (Version None)
Quarter: 2006Q3

REPORT INFORMATION
  Report Type: 
  Country: None (occurrence: None)
  Receive Date: 20060802
  Receipt Date: 20060317
  Transmission Date: 20061208
  Serious: Yes (Other)
  Sender: FDA-Public Use
  Company Number: US-BRISTOL-MYERS SQUIBB COMPANY-13319447

PATIENT
  Sex: Male

DRUGS (5)
  1. COUMADIN [Suspect]
     Indication: CARDIAC OPERATION
     Dosage: WAS TAKING VARIOUS DOSES SINCE THE START OF THERAPY, CURRENT REGIMEN = 7.5 MG ONCE DAILY
     Dates: start: 20000101, end: 20060301
  2. COUMADIN [Suspect]
     Indication: HEART VALVE REPLACEMENT
     Dosage: WAS TAKING VARIOUS DOSES SINCE THE START OF THERAPY, CURRENT REGIMEN = 7.5 MG ONCE DAILY
     Dates: start: 20000101, end: 20060301
  3. MAVIK [Concomitant]
  4. LANOXIN [Concomitant]
  5. LASIX [Concomitant]

REACTIONS (1)
  - HAEMATOCHEZIA [None]
